FAERS Safety Report 20335511 (Version 3)
Quarter: 2022Q1

REPORT INFORMATION
  Report Type: Spontaneous
  Country: IN (occurrence: IN)
  Receive Date: 20220114
  Receipt Date: 20220127
  Transmission Date: 20220423
  Serious: Yes (Other)
  Sender: FDA-Public Use
  Company Number: IN-ASTELLAS-2021US020192

PATIENT
  Age: 73 Year
  Sex: Female

DRUGS (3)
  1. ISAVUCONAZOLE [Suspect]
     Active Substance: ISAVUCONAZOLE
     Indication: Product used for unknown indication
     Dosage: 200 MG, THRICE DAILY (SIX DOSES)
     Route: 042
  2. ISAVUCONAZOLE [Suspect]
     Active Substance: ISAVUCONAZOLE
     Dosage: 200MG, THRICE DAILY, (600MG)
     Route: 048
     Dates: start: 20210407
  3. LINEZOLID [Suspect]
     Active Substance: LINEZOLID
     Indication: Product used for unknown indication
     Dosage: 600 MG, TWICE DAILY (1200 MG)
     Route: 065

REACTIONS (8)
  - Cerebellar atrophy [Unknown]
  - Cerebral atrophy [Unknown]
  - Chiasma syndrome [Unknown]
  - Optic atrophy [Unknown]
  - Escherichia infection [Unknown]
  - Acinetobacter test positive [Unknown]
  - Nausea [Recovered/Resolved]
  - Vomiting [Recovered/Resolved]
